FAERS Safety Report 23700310 (Version 1)
Quarter: 2024Q2

REPORT INFORMATION
  Report Type: Report from Study
  Country: JP (occurrence: JP)
  Receive Date: 20240403
  Receipt Date: 20240403
  Transmission Date: 20240716
  Serious: Yes (Other)
  Sender: FDA-Public Use
  Company Number: JP-ORPHANEU-2024000910

PATIENT

DRUGS (10)
  1. ISTURISA [Suspect]
     Active Substance: OSILODROSTAT PHOSPHATE
     Indication: Cushing^s syndrome
     Dosage: 2 MG, BID
     Dates: start: 20221013, end: 20230410
  2. ISTURISA [Suspect]
     Active Substance: OSILODROSTAT PHOSPHATE
     Dosage: 1 MG, QD
     Dates: start: 20230411, end: 20230629
  3. NEXIUM [Concomitant]
     Active Substance: ESOMEPRAZOLE MAGNESIUM
     Indication: Disease complication
     Dosage: 20MG DAILY, BEFORE THE START OF ISTURISA
     Route: 048
  4. JANUVIA [Concomitant]
     Active Substance: SITAGLIPTIN PHOSPHATE
     Indication: Disease complication
     Dosage: 25MG DAILY, BEFORE THE START OF ISTURISA
     Route: 048
  5. ELDECALCITOL [Concomitant]
     Active Substance: ELDECALCITOL
     Indication: Disease complication
     Dosage: 0.75MICROGRAM DAILY, BEFORE THE START OF ISTURISA
     Route: 048
  6. VIVIANT [Concomitant]
     Active Substance: BAZEDOXIFENE
     Indication: Disease complication
     Dosage: 20MG DAILY, BEFORE THE START OF ISTURISA
     Route: 048
  7. ZOLPIDEM TARTRATE [Concomitant]
     Active Substance: ZOLPIDEM TARTRATE
     Indication: Disease complication
     Dosage: 10MG DAILY, BEFORE THE START OF ISTURISA
     Route: 048
  8. OLMESARTAN [Concomitant]
     Active Substance: OLMESARTAN
     Indication: Disease complication
     Dosage: 10MG DAILY, BEFORE THE START OF ISTURISA
     Route: 048
     Dates: end: 20221116
  9. NIFEDIPINE [Concomitant]
     Active Substance: NIFEDIPINE
     Indication: Disease complication
     Dosage: 20MG DAILY, BEFORE THE START OF ISTURISA
     Route: 048
     Dates: end: 20221116
  10. XYZAL [Concomitant]
     Active Substance: LEVOCETIRIZINE DIHYDROCHLORIDE
     Indication: Disease complication
     Dosage: 5MG DAILY
     Route: 048
     Dates: start: 20221013

REACTIONS (2)
  - Glucocorticoid deficiency [Recovering/Resolving]
  - Hypotension [Recovering/Resolving]

NARRATIVE: CASE EVENT DATE: 20221207
